FAERS Safety Report 21485451 (Version 1)
Quarter: 2022Q4

REPORT INFORMATION
  Report Type: Spontaneous
  Country: US (occurrence: US)
  Receive Date: 20221020
  Receipt Date: 20221020
  Transmission Date: 20230112
  Serious: No
  Sender: FDA-Public Use
  Company Number: US-PFIZER INC-202201241439

PATIENT
  Age: 71 Year
  Sex: Male
  Weight: 81.646 kg

DRUGS (2)
  1. DOXYCYCLINE HYCLATE [Suspect]
     Active Substance: DOXYCYCLINE HYCLATE
     Dosage: UNK
  2. SIMPONI [Suspect]
     Active Substance: GOLIMUMAB
     Dosage: UNK

REACTIONS (1)
  - Dermatitis allergic [Unknown]
